FAERS Safety Report 25225117 (Version 6)
Quarter: 2025Q3

REPORT INFORMATION
  Report Type: Report from Study
  Country: US (occurrence: US)
  Receive Date: 20250422
  Receipt Date: 20250923
  Transmission Date: 20251021
  Serious: Yes (Hospitalization)
  Sender: SUNOVION
  Company Number: US-SMPA-2025SPA003728AA

PATIENT
  Age: 60 Year
  Sex: Male

DRUGS (19)
  1. ORGOVYX [Suspect]
     Active Substance: RELUGOLIX
     Indication: Prostate cancer
     Route: 048
  2. ORGOVYX [Suspect]
     Active Substance: RELUGOLIX
     Dosage: 120 MG, QD
     Route: 048
     Dates: start: 2024
  3. ALBUTEROL SULFATE [Concomitant]
     Active Substance: ALBUTEROL SULFATE
  4. ATORVASTATIN [Concomitant]
     Active Substance: ATORVASTATIN
  5. IBUPROFEN [Concomitant]
     Active Substance: IBUPROFEN
  6. ELIQUIS [Concomitant]
     Active Substance: APIXABAN
  7. NUBEQA [Concomitant]
     Active Substance: DAROLUTAMIDE
  8. GABAPENTIN [Concomitant]
     Active Substance: GABAPENTIN
  9. HYDROCHLOROTHIAZIDE [Concomitant]
     Active Substance: HYDROCHLOROTHIAZIDE
  10. LISINOPRIL [Concomitant]
     Active Substance: LISINOPRIL
  11. NALOXONE [Concomitant]
     Active Substance: NALOXONE
  12. OLANZAPINE [Concomitant]
     Active Substance: OLANZAPINE
  13. OXCARBAZEPINE [Concomitant]
     Active Substance: OXCARBAZEPINE
  14. K PHOS NEUTRAL [Concomitant]
     Active Substance: POTASSIUM PHOSPHATE, MONOBASIC\SODIUM PHOSPHATE, DIBASIC, ANHYDROUS\SODIUM PHOSPHATE, MONOBASIC, MON
  15. PRAZOSIN [Concomitant]
     Active Substance: PRAZOSIN
  16. TAMSULOSIN [Concomitant]
     Active Substance: TAMSULOSIN
  17. TRELEGY ELLIPTA [Concomitant]
     Active Substance: FLUTICASONE FUROATE\UMECLIDINIUM BROMIDE\VILANTEROL TRIFENATATE
  18. XTAMPZA ER [Concomitant]
     Active Substance: OXYCODONE
  19. OXYGEN [Concomitant]
     Active Substance: OXYGEN

REACTIONS (8)
  - Visual impairment [Unknown]
  - Joint swelling [Unknown]
  - Oxygen saturation decreased [Unknown]
  - Muscle twitching [Unknown]
  - Somnolence [Unknown]
  - Bone pain [Unknown]
  - Hot flush [Unknown]
  - Product dose omission issue [Recovered/Resolved]
